FAERS Safety Report 17251007 (Version 1)
Quarter: 2020Q1

REPORT INFORMATION
  Report Type: Report from Study
  Country: IT (occurrence: IT)
  Receive Date: 20200109
  Receipt Date: 20200109
  Transmission Date: 20200409
  Serious: Yes (Other)
  Sender: FDA-Public Use
  Company Number: IT-TEVA-2020-IT-1164516

PATIENT
  Age: 57 Year
  Sex: Female
  Weight: 54 kg

DRUGS (3)
  1. PACLITAXEL. [Suspect]
     Active Substance: PACLITAXEL
     Indication: NEOPLASM MALIGNANT
     Dosage: 95 MILLIGRAM
     Route: 042
     Dates: start: 20191031
  2. SIMECRIN 40 MG COMPRESSE MASTICABILI [Concomitant]
     Indication: ABDOMINAL DISTENSION
     Dosage: 150 MILLIGRAM
     Route: 048
  3. RIVOTRIL [Concomitant]
     Active Substance: CLONAZEPAM
     Indication: INSOMNIA
     Dosage: 10 GTT
     Route: 048

REACTIONS (3)
  - Dyspnoea [Recovering/Resolving]
  - Ascites [Recovering/Resolving]
  - Eating disorder [Recovering/Resolving]

NARRATIVE: CASE EVENT DATE: 20191121
